FAERS Safety Report 6663799-X (Version None)
Quarter: 2010Q2

REPORT INFORMATION
  Report Type: 
  Country: None (occurrence: None)
  Receive Date: 20100401
  Receipt Date: 20100322
  Transmission Date: 20101027
  Serious: Yes (Other)
  Sender: FDA-Public Use
  Company Number: US-JNJFOC-20100306660

PATIENT
  Sex: Male

DRUGS (1)
  1. REMICADE [Suspect]
     Indication: CROHN'S DISEASE
     Dosage: INTERMITTENT, EPISODIC INFUSIONS,
     Route: 042

REACTIONS (2)
  - INTESTINAL OBSTRUCTION [None]
  - NON-HODGKIN'S LYMPHOMA [None]
